FAERS Safety Report 6176923-2 (Version None)
Quarter: 2009Q2

REPORT INFORMATION
  Report Type: 
  Country: None (occurrence: None)
  Receive Date: 20090501
  Receipt Date: 20090428
  Transmission Date: 20091009
  Serious: Yes (Other)
  Sender: FDA-Public Use
  Company Number: US-GILEAD-2009-0021698

PATIENT
  Sex: Female
  Weight: 59.02 kg

DRUGS (7)
  1. LETAIRIS [Suspect]
     Indication: PULMONARY ARTERIAL HYPERTENSION
     Route: 048
     Dates: start: 20071011
  2. AMBIEN [Concomitant]
  3. CELEBREX [Concomitant]
  4. ALLEGRA [Concomitant]
  5. ACTONEL [Concomitant]
  6. CALCIUM +D [Concomitant]
  7. EFFEXOR XR [Concomitant]

REACTIONS (1)
  - OVARIAN CANCER RECURRENT [None]
